FAERS Safety Report 8395573-0 (Version None)
Quarter: 2012Q2

REPORT INFORMATION
  Report Type: 
  Country: None (occurrence: None)
  Receive Date: 20120530
  Receipt Date: 20110912
  Transmission Date: 20120825
  Serious: No
  Sender: FDA-Public Use
  Company Number: US-GLAXOSMITHKLINE-A0944170A

PATIENT
  Age: 32 Year
  Sex: Male

DRUGS (2)
  1. ALLERGY MEDICINE [Concomitant]
  2. VENTOLIN [Suspect]
     Indication: ASTHMA
     Dosage: 2PUFF AS REQUIRED
     Route: 055
     Dates: start: 20080101

REACTIONS (4)
  - DRUG INEFFECTIVE [None]
  - TREMOR [None]
  - OVERDOSE [None]
  - PRODUCT QUALITY ISSUE [None]
